FAERS Safety Report 8545362-9 (Version None)
Quarter: 2012Q3

REPORT INFORMATION
  Report Type: 
  Country: None (occurrence: None)
  Receive Date: 20120727
  Receipt Date: 20120723
  Transmission Date: 20120928
  Serious: No
  Sender: FDA-Public Use
  Company Number: VE-PFIZER INC-2012173716

PATIENT
  Age: 86 Year
  Sex: Female

DRUGS (1)
  1. CADUET [Suspect]
     Indication: CEREBROVASCULAR ACCIDENT
     Dosage: [AMLODIPINE BESILATE 5 MG]/ [ATORVASTATIN CALCIUM 40MG], 1X/DAY
     Route: 048

REACTIONS (1)
  - NO ADVERSE EVENT [None]
